FAERS Safety Report 25803129 (Version 1)
Quarter: 2025Q3

REPORT INFORMATION
  Report Type: Spontaneous
  Country: US (occurrence: None)
  Receive Date: 20250913
  Receipt Date: 20250913
  Transmission Date: 20251021
  Serious: Yes (Hospitalization)
  Sender: FDA-CTU
  Company Number: None

PATIENT
  Sex: Female

DRUGS (1)
  1. COSENTYX [Suspect]
     Active Substance: SECUKINUMAB
     Indication: Generalised pustular psoriasis
     Dosage: OTHER FREQUENCY : EVERY 4 WEEKS;?
     Route: 058
     Dates: start: 20210316

REACTIONS (3)
  - Urinary tract infection [None]
  - Blood glucose increased [None]
  - Blood pressure abnormal [None]
